FAERS Safety Report 7488736-X (Version None)
Quarter: 2011Q2

REPORT INFORMATION
  Report Type: 
  Country: None (occurrence: None)
  Receive Date: 20110511
  Receipt Date: 20110426
  Transmission Date: 20111010
  Serious: Yes (Hospitalization, Other)
  Sender: FDA-Public Use
  Company Number: IPC201104-000771

PATIENT
  Age: 75 Year
  Sex: Female

DRUGS (4)
  1. METRONIDAZOLE [Concomitant]
  2. METFORMIN HYDROCHLORIDE [Suspect]
     Indication: DIABETES MELLITUS
  3. OXYCODONE HCL [Suspect]
  4. ACETAMINOPHEN [Suspect]

REACTIONS (10)
  - ACIDOSIS [None]
  - CLOSTRIDIUM DIFFICILE COLITIS [None]
  - DECREASED APPETITE [None]
  - TOXICITY TO VARIOUS AGENTS [None]
  - SHOCK [None]
  - URINARY TRACT INFECTION [None]
  - HAEMODIALYSIS [None]
  - PANCREATITIS ACUTE [None]
  - OLIGURIA [None]
  - CONFUSIONAL STATE [None]
